FAERS Safety Report 18589613 (Version 2)
Quarter: 2021Q1

REPORT INFORMATION
  Report Type: Report from Study
  Country: US (occurrence: US)
  Receive Date: 20201208
  Receipt Date: 20210201
  Transmission Date: 20210419
  Serious: Yes (Other)
  Sender: FDA-Public Use
  Company Number: US-ASTRAZENECA-2020SF61573

PATIENT
  Age: 71 Year
  Sex: Male

DRUGS (2)
  1. TAGRISSO [Suspect]
     Active Substance: OSIMERTINIB
     Indication: LUNG NEOPLASM MALIGNANT
     Dosage: IS INCREASING DOSE TO 160MG/DAY
     Route: 048
     Dates: start: 20190813
  2. TAGRISSO [Suspect]
     Active Substance: OSIMERTINIB
     Indication: LUNG NEOPLASM MALIGNANT
     Route: 048

REACTIONS (4)
  - Malignant neoplasm progression [Unknown]
  - Product dose omission issue [Unknown]
  - Brain neoplasm [Not Recovered/Not Resolved]
  - Metastases to central nervous system [Unknown]
